FAERS Safety Report 24526836 (Version 1)
Quarter: 2024Q4

REPORT INFORMATION
  Report Type: Spontaneous
  Country: US (occurrence: US)
  Receive Date: 20241021
  Receipt Date: 20241021
  Transmission Date: 20250115
  Serious: No
  Sender: ROCHE
  Company Number: US-ROCHE-3540777

PATIENT
  Sex: Male

DRUGS (3)
  1. ZELBORAF [Suspect]
     Active Substance: VEMURAFENIB
     Indication: Hairy cell leukaemia
     Route: 048
     Dates: start: 202402
  2. VYNDAMAX [Concomitant]
     Active Substance: TAFAMIDIS
  3. DOFETILIDE [Concomitant]
     Active Substance: DOFETILIDE

REACTIONS (3)
  - Off label use [Unknown]
  - Oedema [Unknown]
  - Stomatitis [Unknown]
